FAERS Safety Report 6360666-6 (Version None)
Quarter: 2009Q3

REPORT INFORMATION
  Report Type: 
  Country: None (occurrence: None)
  Receive Date: 20090918
  Receipt Date: 20090916
  Transmission Date: 20100115
  Serious: Yes (Hospitalization)
  Sender: FDA-Public Use
  Company Number: US-BIOGENIDEC-2009BI026564

PATIENT
  Age: 32 Year
  Sex: Female
  Weight: 93 kg

DRUGS (9)
  1. TYSABRI [Suspect]
     Indication: MULTIPLE SCLEROSIS
     Route: 042
     Dates: start: 20071004
  2. ZOLOFT [Concomitant]
  3. OMEPRAZOLE [Concomitant]
  4. ZANAFLEX [Concomitant]
  5. PROCARDIA XL [Concomitant]
  6. PROVIGIL [Concomitant]
  7. LAMICTAL [Concomitant]
  8. CYMBALTA [Concomitant]
  9. AMBIEN [Concomitant]

REACTIONS (2)
  - CERVICAL DYSPLASIA [None]
  - SUICIDE ATTEMPT [None]
